FAERS Safety Report 8832209 (Version 1)
Quarter: 2012Q4

REPORT INFORMATION
  Report Type: 
  Country: US (occurrence: US)
  Receive Date: 20121009
  Receipt Date: 20121009
  Transmission Date: 20130627
  Serious: No
  Sender: FDA-Public Use
  Company Number: US-ASTRAZENECA-2012SE74583

PATIENT
  Age: 17 Year
  Sex: Female
  Weight: 69.9 kg

DRUGS (5)
  1. SEROQUEL [Suspect]
     Indication: AFFECTIVE DISORDER
     Route: 048
  2. ABILIFY [Concomitant]
  3. FLUVOXAMINE [Concomitant]
  4. PRILOSEC [Concomitant]
  5. MELATONIN [Concomitant]

REACTIONS (1)
  - Drug screen false positive [Unknown]
